FAERS Safety Report 6745062-1 (Version None)
Quarter: 2010Q2

REPORT INFORMATION
  Report Type: 
  Country: None (occurrence: None)
  Receive Date: 20100527
  Receipt Date: 20100525
  Transmission Date: 20101027
  Serious: Yes (Hospitalization)
  Sender: FDA-Public Use
  Company Number: FR-MERCK-1005FRA00091

PATIENT
  Age: 16 Year
  Sex: Male

DRUGS (12)
  1. CANCIDAS [Suspect]
     Indication: ASPERGILLOSIS
     Route: 042
     Dates: start: 20100409, end: 20100409
  2. CANCIDAS [Suspect]
     Route: 042
     Dates: start: 20100331, end: 20100406
  3. CANCIDAS [Suspect]
     Route: 042
     Dates: start: 20100330, end: 20100330
  4. CANCIDAS [Suspect]
     Route: 042
     Dates: start: 20100410
  5. TOBRADEX [Concomitant]
     Route: 065
  6. POLARAMIDE [Concomitant]
     Route: 065
  7. VOGALENE [Concomitant]
     Route: 065
  8. ZOPHREN [Concomitant]
     Route: 065
  9. SABRIL [Concomitant]
     Route: 065
     Dates: end: 20100408
  10. VFEND [Suspect]
     Indication: ASPERGILLOSIS
     Route: 048
     Dates: start: 20100331, end: 20100331
  11. VFEND [Suspect]
     Route: 048
     Dates: start: 20100401, end: 20100401
  12. VFEND [Suspect]
     Route: 048
     Dates: start: 20100402, end: 20100406

REACTIONS (1)
  - RENAL FAILURE [None]
